FAERS Safety Report 13370707 (Version 1)
Quarter: 2017Q1

REPORT INFORMATION
  Report Type: Spontaneous
  Country: MX (occurrence: MX)
  Receive Date: 20170324
  Receipt Date: 20170324
  Transmission Date: 20170429
  Serious: Yes (Death, Hospitalization, Other)
  Sender: FDA-Public Use
  Company Number: PHHY2017MX044128

PATIENT
  Age: 86 Year
  Sex: Female
  Weight: 75 kg

DRUGS (2)
  1. ATACAND [Concomitant]
     Active Substance: CANDESARTAN CILEXETIL
     Indication: DYSPNOEA EXERTIONAL
     Route: 065
  2. ENTRESTO [Suspect]
     Active Substance: SACUBITRIL\VALSARTAN
     Indication: DYSPNOEA EXERTIONAL
     Dosage: 50 MG, Q12H
     Route: 065

REACTIONS (5)
  - Blood uric acid increased [Unknown]
  - Femur fracture [Unknown]
  - Product use issue [Unknown]
  - Hypovolaemic shock [Fatal]
  - Fall [Unknown]

NARRATIVE: CASE EVENT DATE: 20160711
